FAERS Safety Report 4664436-6 (Version None)
Quarter: 2005Q2

REPORT INFORMATION
  Report Type: 
  Country: None (occurrence: None)
  Receive Date: 20050518
  Receipt Date: 20050509
  Transmission Date: 20051028
  Serious: Yes (Hospitalization, Other)
  Sender: FDA-Public Use
  Company Number: GB-JNJFOC-20050502018

PATIENT
  Sex: Female
  Weight: 54 kg

DRUGS (14)
  1. REMICADE [Suspect]
     Indication: RHEUMATOID ARTHRITIS
     Route: 042
  2. METHOTREXATE [Suspect]
     Indication: DRUG USE FOR UNKNOWN INDICATION
  3. PREDNISOLONE [Concomitant]
  4. FOLIC ACID [Concomitant]
  5. FOSAMAX [Concomitant]
  6. VIOXX [Concomitant]
  7. CO-CODAMOL [Concomitant]
  8. CO-CODAMOL [Concomitant]
  9. FLECAINIDE ACETATE [Concomitant]
  10. NEOCLARITYN [Concomitant]
  11. NASONEX [Concomitant]
  12. NASONEX [Concomitant]
  13. COD LIVER OIL [Concomitant]
  14. EVENING PRIMROSE OIL [Concomitant]

REACTIONS (1)
  - ALVEOLITIS [None]
